FAERS Safety Report 16515650 (Version 1)
Quarter: 2019Q3

REPORT INFORMATION
  Report Type: Spontaneous
  Country: US (occurrence: US)
  Receive Date: 20190702
  Receipt Date: 20190702
  Transmission Date: 20191004
  Serious: Yes (Other)
  Sender: FDA-Public Use
  Company Number: US-PFIZER INC-2019274365

PATIENT
  Age: 39 Year
  Sex: Male

DRUGS (11)
  1. MERCAPTOPURINE. [Suspect]
     Active Substance: MERCAPTOPURINE
     Indication: ACUTE LYMPHOCYTIC LEUKAEMIA
     Dosage: 60 MG/M2, (PHASE II INDUCTION, THROUGHOUT)
     Route: 037
     Dates: start: 2015
  2. IMATINIB. [Suspect]
     Active Substance: IMATINIB MESYLATE
     Indication: ACUTE LYMPHOCYTIC LEUKAEMIA
     Dosage: 400 MG, DAILY (400 MG ESCALATING TO 600 MG DAILY THROUGHOUT INDUCTION TREATMENT)
     Dates: start: 2015
  3. METHOTREXATE SODIUM. [Suspect]
     Active Substance: METHOTREXATE SODIUM
     Indication: ACUTE LYMPHOCYTIC LEUKAEMIA
     Dosage: 12.5 MG, (INDUCTION PHASE I, D 14)
     Route: 037
     Dates: start: 2015
  4. PEG/L-ASPARAGINASE [Suspect]
     Active Substance: PEGASPARGASE
     Indication: ACUTE LYMPHOCYTIC LEUKAEMIA
     Dosage: 1000 IU/M2 ON DAYS 4 AND 18
     Dates: start: 2015
  5. VINCRISTINE SULFATE. [Suspect]
     Active Substance: VINCRISTINE SULFATE
     Indication: ACUTE LYMPHOCYTIC LEUKAEMIA
     Dosage: 1.4 MG/M2, (INDUCTION PHASE I, ON D1, 8, 15 AND 22)
     Dates: start: 2015
  6. IMATINIB. [Suspect]
     Active Substance: IMATINIB MESYLATE
     Dosage: 600 MG, DAILY (400 MG ESCALATING TO 600 MG DAILY THROUGHOUT INDUCTION TREATMENT)
     Dates: start: 2015
  7. DEXAMETHASONE. [Suspect]
     Active Substance: DEXAMETHASONE
     Indication: ACUTE LYMPHOCYTIC LEUKAEMIA
     Dosage: 10 MG/M2 (INDUCTION PHASE I, D1-4, 8-11,15-18)
     Dates: start: 2015
  8. CYTARABINE. [Suspect]
     Active Substance: CYTARABINE
     Indication: ACUTE LYMPHOCYTIC LEUKAEMIA
     Dosage: 75 MG/M2, (PHASE II INDUCTION, D2-5, 9-12, 16-19 + 23-26)
     Dates: start: 2015
  9. DAUNORUBICIN [Suspect]
     Active Substance: DAUNORUBICIN
     Indication: ACUTE LYMPHOCYTIC LEUKAEMIA
     Dosage: 30 MG/M2, (INDUCTION PHASE I, ON D1, 8, 15 AND 22)
     Dates: start: 2015
  10. CYCLOPHOSPHAMIDE. [Suspect]
     Active Substance: CYCLOPHOSPHAMIDE
     Indication: ACUTE LYMPHOCYTIC LEUKAEMIA
     Dosage: 1000 MG/M2 (PHASE II INDUCTION, D1, 15)
     Dates: start: 2015
  11. METHOTREXATE SODIUM. [Suspect]
     Active Substance: METHOTREXATE SODIUM
     Dosage: CYCLIC (PHASE II INDUCTION, D1, 8, 15, 22)
     Route: 037
     Dates: start: 2015

REACTIONS (3)
  - Pneumonia [Unknown]
  - Febrile neutropenia [Unknown]
  - Constipation [Unknown]

NARRATIVE: CASE EVENT DATE: 2015
